FAERS Safety Report 18882538 (Version 1)
Quarter: 2021Q1

REPORT INFORMATION
  Report Type: Spontaneous
  Country: US (occurrence: US)
  Receive Date: 20210212
  Receipt Date: 20210212
  Transmission Date: 20210420
  Serious: No
  Sender: FDA-Public Use
  Company Number: US-SA-2021SA044670

PATIENT
  Age: 20 Year
  Sex: Male

DRUGS (1)
  1. DUPIXENT [Suspect]
     Active Substance: DUPILUMAB
     Indication: SHORT STATURE
     Dosage: 300 MG,QOW
     Route: 058

REACTIONS (1)
  - Illness [Unknown]

NARRATIVE: CASE EVENT DATE: 202101
